FAERS Safety Report 25474461 (Version 2)
Quarter: 2025Q3

REPORT INFORMATION
  Report Type: Spontaneous
  Country: US (occurrence: US)
  Receive Date: 20250624
  Receipt Date: 20250709
  Transmission Date: 20251021
  Serious: No
  Sender: BAUSCH AND LOMB
  Company Number: US-BAUSCHBL-2025BNL011143

PATIENT
  Age: 83 Year
  Sex: Female
  Weight: 58.96 kg

DRUGS (2)
  1. LUMIFY [Suspect]
     Active Substance: BRIMONIDINE TARTRATE
     Indication: Erythema
     Route: 047
     Dates: start: 20250620, end: 20250620
  2. LUMIFY [Suspect]
     Active Substance: BRIMONIDINE TARTRATE
     Indication: Routine health maintenance

REACTIONS (4)
  - Dizziness [Recovered/Resolved]
  - Disorientation [Recovered/Resolved]
  - Feeling abnormal [Recovered/Resolved]
  - Circumstance or information capable of leading to medication error [Unknown]

NARRATIVE: CASE EVENT DATE: 20250620
